FAERS Safety Report 14996541 (Version 1)
Quarter: 2018Q2

REPORT INFORMATION
  Report Type: Spontaneous
  Country: IN (occurrence: IN)
  Receive Date: 20180611
  Receipt Date: 20180611
  Transmission Date: 20180711
  Serious: Yes (Hospitalization, Other)
  Sender: FDA-Public Use
  Company Number: IN-IMPAX LABORATORIES, INC-2018-IPXL-01982

PATIENT
  Age: 38 Year
  Sex: Female

DRUGS (1)
  1. DIGOXIN. [Suspect]
     Active Substance: DIGOXIN
     Indication: RHEUMATIC HEART DISEASE
     Dosage: UNK
     Route: 065

REACTIONS (3)
  - Mitral valve stenosis [Recovered/Resolved]
  - Procedural complication [Recovered/Resolved]
  - Cardiac tamponade [Recovered/Resolved]
